FAERS Safety Report 9314892 (Version 2)
Quarter: 2013Q4

REPORT INFORMATION
  Report Type: Spontaneous
  Country: US (occurrence: US)
  Receive Date: 20130529
  Receipt Date: 20131205
  Transmission Date: 20140711
  Serious: Yes (Hospitalization)
  Sender: FDA-Public Use
  Company Number: US-B.I. PHARMACEUTICALS,INC./RIDGEFIELD-2013-BI-14423BP

PATIENT
  Age: 89 Year
  Sex: Female
  Weight: 51.71 kg

DRUGS (9)
  1. PRADAXA [Suspect]
     Indication: ATRIAL FIBRILLATION
     Dosage: 300 MG
     Dates: start: 20110118, end: 20120119
  2. COREG [Concomitant]
  3. LOSARTAN [Concomitant]
  4. SIMVASTATIN [Concomitant]
  5. LANTUS [Concomitant]
     Dosage: 30 U
     Route: 058
  6. CRESTOR [Concomitant]
  7. DIOVAN [Concomitant]
     Dates: start: 20090711
  8. LASIX [Concomitant]
  9. AMIODARONE [Concomitant]

REACTIONS (4)
  - Fall [Unknown]
  - Femur fracture [Unknown]
  - Gastrointestinal haemorrhage [Unknown]
  - Haemorrhagic anaemia [Unknown]
